FAERS Safety Report 5121260-8 (Version None)
Quarter: 2006Q4

REPORT INFORMATION
  Report Type: 
  Country: None (occurrence: None)
  Receive Date: 20061005
  Receipt Date: 20060823
  Transmission Date: 20070319
  Serious: Yes (Hospitalization, Other)
  Sender: FDA-Public Use
  Company Number: US-BOEHRINGER INGELHEIM PHARMACEUTICALS, INC.-2006-BP-10084PF

PATIENT
  Sex: Male
  Weight: 108.86 kg

DRUGS (10)
  1. SPIRIVA [Suspect]
     Indication: CHRONIC OBSTRUCTIVE PULMONARY DISEASE
     Route: 055
     Dates: start: 20060201
  2. LIPITOR [Suspect]
     Indication: BLOOD CHOLESTEROL INCREASED
     Dates: start: 19930101
  3. TIKOSYN [Suspect]
     Indication: ATRIAL FIBRILLATION
     Dates: start: 20060701
  4. ACCUPRIL [Suspect]
     Indication: CARDIAC DISORDER
  5. COUMADIN [Concomitant]
  6. COREG [Concomitant]
  7. DIGITEK [Concomitant]
  8. SINGULAIR [Concomitant]
  9. ZETIA [Concomitant]
  10. FLOMAX [Concomitant]

REACTIONS (4)
  - ATRIAL FIBRILLATION [None]
  - HEADACHE [None]
  - INTERNATIONAL NORMALISED RATIO DECREASED [None]
  - VENTRICULAR EXTRASYSTOLES [None]
